FAERS Safety Report 5244472-1 (Version None)
Quarter: 2007Q1

REPORT INFORMATION
  Report Type: 
  Country: None (occurrence: None)
  Receive Date: 20070222
  Receipt Date: 20070212
  Transmission Date: 20070707
  Serious: Yes (Hospitalization)
  Sender: FDA-Public Use
  Company Number: FR-ABBOTT-07P-056-0354839-00

PATIENT
  Age: 75 Year
  Sex: Male

DRUGS (11)
  1. DEPAKENE [Suspect]
     Indication: CONVULSION
     Route: 048
     Dates: start: 20060809, end: 20060820
  2. DEPAKENE [Suspect]
     Route: 048
     Dates: start: 20060821, end: 20060821
  3. DEPAKENE [Suspect]
     Dates: start: 20060824
  4. NICARDIPINE HYDROCHLORIDE [Concomitant]
     Indication: HYPERTENSION
     Route: 048
     Dates: end: 20060815
  5. NICARDIPINE HYDROCHLORIDE [Concomitant]
     Indication: CARDIOMYOPATHY
  6. DIGOXIN [Concomitant]
     Indication: HYPERTENSION
     Route: 048
  7. DIGOXIN [Concomitant]
     Indication: CARDIOMYOPATHY
  8. FUROSEMIDE [Concomitant]
     Indication: HYPERTENSION
     Route: 048
     Dates: end: 20060828
  9. FUROSEMIDE [Concomitant]
     Indication: CARDIOMYOPATHY
  10. BACLOFEN [Concomitant]
     Indication: DRUG USE FOR UNKNOWN INDICATION
     Route: 048
     Dates: end: 20060821
  11. FINASTERIDE [Concomitant]
     Indication: BENIGN PROSTATIC HYPERPLASIA
     Route: 048
     Dates: end: 20060828

REACTIONS (4)
  - ACCIDENTAL OVERDOSE [None]
  - COGNITIVE DISORDER [None]
  - DISTURBANCE IN ATTENTION [None]
  - PNEUMONIA ASPIRATION [None]
